FAERS Safety Report 8424157-0 (Version None)
Quarter: 2012Q2

REPORT INFORMATION
  Report Type: 
  Country: None (occurrence: None)
  Receive Date: 20120608
  Receipt Date: 20120215
  Transmission Date: 20120825
  Serious: Yes (Other)
  Sender: FDA-Public Use
  Company Number: US-ASTRAZENECA-2012SE07021

PATIENT
  Age: 84 Year
  Sex: Male
  Weight: 72.6 kg

DRUGS (9)
  1. ASOPH [Concomitant]
  2. VITAMIN E [Concomitant]
  3. EYE DROPS [Concomitant]
     Indication: GLAUCOMA
  4. SIMVASTATIN [Concomitant]
  5. PULMICORT FLEXHALER [Suspect]
     Indication: BRONCHITIS CHRONIC
     Dosage: 180 MCG 2 PUFF TWICE DAILY
     Route: 055
     Dates: start: 20010101
  6. ASPIRIN [Concomitant]
  7. XALATAN [Concomitant]
  8. ASCORBIC ACID [Concomitant]
  9. VITAMIN B-12 [Concomitant]

REACTIONS (2)
  - GLAUCOMA [None]
  - OFF LABEL USE [None]
